FAERS Safety Report 5727312-3 (Version None)
Quarter: 2008Q2

REPORT INFORMATION
  Report Type: 
  Country: None (occurrence: None)
  Receive Date: 20080430
  Receipt Date: 20080415
  Transmission Date: 20081010
  Serious: Yes (Hospitalization)
  Sender: FDA-Public Use
  Company Number: DIAT-14

PATIENT
  Age: 43 Year
  Sex: Female

DRUGS (8)
  1. DAUNOXOME [Suspect]
     Dosage: 60 MG/M2 IV
     Route: 042
     Dates: start: 20080129, end: 20080201
  2. ARACYTINE [Suspect]
     Dosage: 200 MG/M2 IV
     Route: 042
     Dates: start: 20080120, end: 20080205
  3. HEXTRIL [Concomitant]
  4. TRIFLUCAN [Concomitant]
  5. AMIKLIN. MFR: NOT SPECIFIED [Concomitant]
  6. PRIMPERAN. MFR: NOT SPECIFIED [Concomitant]
  7. FORLAX [Concomitant]
  8. LUTENYL [Concomitant]

REACTIONS (3)
  - PRURIGO [None]
  - RASH VESICULAR [None]
  - THROMBOCYTOPENIC PURPURA [None]
